FAERS Safety Report 7415884-2 (Version None)
Quarter: 2011Q2

REPORT INFORMATION
  Report Type: 
  Country: None (occurrence: None)
  Receive Date: 20110414
  Receipt Date: 20110331
  Transmission Date: 20111010
  Serious: Yes (Other)
  Sender: FDA-Public Use
  Company Number: PHHY2011JP19633

PATIENT
  Age: 35 Year
  Sex: Male

DRUGS (1)
  1. GLEEVEC [Suspect]
     Indication: ACUTE MYELOID LEUKAEMIA
     Dosage: 600 MG, DAILY
     Route: 048

REACTIONS (3)
  - CYTOMEGALOVIRUS VIRAEMIA [None]
  - ADENOVIRAL HAEMORRHAGIC CYSTITIS [None]
  - ACUTE GRAFT VERSUS HOST DISEASE [None]
